FAERS Safety Report 18253189 (Version 2)
Quarter: 2020Q3

REPORT INFORMATION
  Report Type: Report from Study
  Country: US (occurrence: US)
  Receive Date: 20200910
  Receipt Date: 20200914
  Transmission Date: 20201103
  Serious: Yes (Other)
  Sender: FDA-Public Use
  Company Number: US-PFIZER INC-2020344152

PATIENT
  Age: 7 Year
  Sex: Female

DRUGS (2)
  1. ELLIOTTS B SOLUTION [Concomitant]
     Dosage: 6 ML
  2. METHOTREXATE SODIUM. [Suspect]
     Active Substance: METHOTREXATE SODIUM
     Indication: ACUTE LYMPHOCYTIC LEUKAEMIA
     Dosage: 12 MG/M2, SINGLE INJECTIONS, 2X/WEEK IN 6 ML ELLIOTS B SOLUTION
     Route: 037

REACTIONS (3)
  - Dementia [Recovering/Resolving]
  - Neurotoxicity [Recovering/Resolving]
  - Encephalopathy [Recovering/Resolving]
